FAERS Safety Report 7495213-9 (Version None)
Quarter: 2011Q2

REPORT INFORMATION
  Report Type: 
  Country: None (occurrence: None)
  Receive Date: 20110520
  Receipt Date: 20110510
  Transmission Date: 20111010
  Serious: Yes (Hospitalization)
  Sender: FDA-Public Use
  Company Number: US-AMGEN-USASP2011021196

PATIENT
  Age: 90 Year
  Sex: Male
  Weight: 56.916 kg

DRUGS (13)
  1. CARTEOLOL HYDROCHLORIDE [Concomitant]
     Dosage: UNK UNK, BID
     Route: 047
  2. XGEVA [Suspect]
     Indication: METASTASES TO BONE
     Dosage: 120 MG, Q4WK
     Route: 058
     Dates: start: 20110311, end: 20110412
  3. SIMVASTATIN [Concomitant]
     Dosage: 20 MG, QD
  4. VITAMIN B12                        /00056201/ [Concomitant]
  5. VITAMIN B6 [Concomitant]
  6. FOLIC ACID [Concomitant]
  7. COUMADIN [Concomitant]
  8. BICALUTAMIDE [Concomitant]
     Dosage: 50 MG, QD
  9. SOTALOL HCL [Concomitant]
     Dosage: 320 MG, QD
  10. LUPRON [Concomitant]
     Dosage: 7.5 MG, UNK
     Dates: start: 20110311
  11. FISH OIL [Concomitant]
     Dosage: UNK UNK, QD
  12. VITAMIN A [Concomitant]
  13. VITAMIN C                          /00008001/ [Concomitant]

REACTIONS (9)
  - PYREXIA [None]
  - ASTHENIA [None]
  - MALAISE [None]
  - HYPOPHAGIA [None]
  - INTERNATIONAL NORMALISED RATIO INCREASED [None]
  - BONE PAIN [None]
  - HAEMATURIA [None]
  - DRY MOUTH [None]
  - ANAEMIA [None]
